FAERS Safety Report 6407946-3 (Version None)
Quarter: 2009Q4

REPORT INFORMATION
  Report Type: 
  Country: None (occurrence: None)
  Receive Date: 20091020
  Receipt Date: 20091013
  Transmission Date: 20100525
  Serious: Yes (Other)
  Sender: FDA-Public Use
  Company Number: GB-JNJCH-2009026916

PATIENT
  Age: 42 Year
  Sex: Female

DRUGS (3)
  1. NICORETTE [Suspect]
     Indication: DRUG USE FOR UNKNOWN INDICATION
     Dosage: TEXT:UNSPECIFIED
     Route: 048
  2. NICOTINE [Suspect]
     Indication: DRUG USE FOR UNKNOWN INDICATION
     Dosage: TEXT:UNSPECIFIED
     Route: 062
  3. CLOZARIL [Suspect]
     Indication: SCHIZOPHRENIA
     Dosage: TEXT:UNSPECIFIED - 600 MG DAILY -625 MG DAILY
     Route: 065

REACTIONS (3)
  - DRUG INTERACTION [None]
  - OROPHARYNGEAL PAIN [None]
  - SCHIZOPHRENIA [None]
